FAERS Safety Report 8085504-5 (Version None)
Quarter: 2012Q1

REPORT INFORMATION
  Report Type: 
  Country: None (occurrence: None)
  Receive Date: 20120128
  Receipt Date: 20110411
  Transmission Date: 20120608
  Serious: No
  Sender: FDA-Public Use
  Company Number: US-ABBOTT-11P-163-0710389-00

PATIENT
  Age: 65 Year
  Sex: Male

DRUGS (8)
  1. CO Q-10 [Concomitant]
     Indication: SUPPLEMENTATION THERAPY
  2. FOBIC TABS [Concomitant]
     Indication: SUPPLEMENTATION THERAPY
  3. KONSYL-FIBER [Concomitant]
     Indication: PRODUCT USED FOR UNKNOWN INDICATION
     Dosage: WITH 8 OZ OF WATER
  4. LIPITOR [Concomitant]
     Indication: BLOOD CHOLESTEROL INCREASED
  5. VITAMIN D [Concomitant]
     Indication: VITAMIN SUPPLEMENTATION
  6. MULTI-VITAMINS [Concomitant]
     Indication: VITAMIN SUPPLEMENTATION
     Dosage: FOR MEN
  7. MEGA RED CEROLE OMEGA [Concomitant]
     Indication: SUPPLEMENTATION THERAPY
  8. HUMIRA [Suspect]
     Indication: RHEUMATOID ARTHRITIS
     Dates: start: 20090401

REACTIONS (6)
  - INJECTION SITE VESICLES [None]
  - INJECTION SITE ERYTHEMA [None]
  - INCORRECT DOSE ADMINISTERED [None]
  - INJECTION SITE PAIN [None]
  - INJECTION SITE PAPULE [None]
  - DEVICE MALFUNCTION [None]
